FAERS Safety Report 8756860 (Version 1)
Quarter: 2012Q4

REPORT INFORMATION
  Report Type: Report from Study
  Country: US (occurrence: US)
  Receive Date: 20120828
  Receipt Date: 20120828
  Transmission Date: 20130627
  Serious: Yes (Hospitalization, Other)
  Sender: FDA-Public Use
  Company Number: US-ABBOTT-12P-163-0970874-00

PATIENT
  Age: 57 Year
  Sex: Female

DRUGS (7)
  1. HUMIRA 40 MG/0.8 ML PEN [Suspect]
     Indication: CROHN^S DISEASE
  2. CITALOPRAM [Concomitant]
     Indication: ANXIETY
     Dosage: 20 mg daily
  3. CITALOPRAM [Concomitant]
     Indication: PAIN IN EXTREMITY
  4. PURINETHOL [Concomitant]
     Indication: PRODUCT USED FOR UNKNOWN INDICATION
     Dosage: 50 mg daily to go with HUMIRA
  5. LOMOTIL [Concomitant]
     Indication: GASTROINTESTINAL DISORDER
  6. FORTEO [Concomitant]
     Indication: OSTEOPOROSIS
     Dosage: A shot daily
  7. SIMVASTATIN [Concomitant]
     Indication: BLOOD CHOLESTEROL INCREASED
     Dosage: At night

REACTIONS (3)
  - Hip fracture [Recovering/Resolving]
  - Fall [Recovered/Resolved]
  - Herpes zoster [Recovered/Resolved]
